FAERS Safety Report 11374714 (Version 1)
Quarter: 2015Q3

REPORT INFORMATION
  Report Type: Spontaneous
  Country: JP (occurrence: JP)
  Receive Date: 20150813
  Receipt Date: 20150813
  Transmission Date: 20151125
  Serious: Yes (Death, Other)
  Sender: FDA-Public Use
  Company Number: JP-AMGEN-JPNSP2015082242

PATIENT
  Age: 48 Year
  Sex: Male

DRUGS (4)
  1. IRINOTECAN HYDROCHLORIDE. [Concomitant]
     Active Substance: IRINOTECAN HYDROCHLORIDE
     Indication: COLON CANCER
     Dosage: UNK, Q2WEEKS
     Route: 041
     Dates: start: 20150722, end: 20150722
  2. CALCIUM LEVOFOLINATE [Concomitant]
     Active Substance: LEVOLEUCOVORIN CALCIUM
     Indication: COLON CANCER
     Dosage: UNK, Q2WEEKS
     Route: 041
     Dates: start: 20150722, end: 20150722
  3. VECTIBIX [Suspect]
     Active Substance: PANITUMUMAB
     Indication: COLON CANCER
     Dosage: UNK, Q2WEEKS
     Route: 041
     Dates: start: 20150722, end: 20150722
  4. FLUOROURACIL. [Concomitant]
     Active Substance: FLUOROURACIL
     Indication: COLON CANCER
     Dosage: UNK, Q2WEEKS
     Route: 042
     Dates: start: 20150722, end: 20150722

REACTIONS (1)
  - Colon cancer [Fatal]
